FAERS Safety Report 9192434 (Version 1)
Quarter: 2013Q1

REPORT INFORMATION
  Report Type: Spontaneous
  Country: US (occurrence: None)
  Receive Date: 20120703
  Receipt Date: 20120703
  Transmission Date: 20140127
  Serious: Yes (Other)
  Sender: FDA-Public Use
  Company Number: PHEH2012US005516

PATIENT
  Age: 53 Year
  Sex: Female

DRUGS (2)
  1. GILENYA (FTY)CAPSULE,0.5MG [Suspect]
     Indication: MULTIPLE SCLEROSIS
     Route: 048
     Dates: start: 201106, end: 201204
  2. FAMPRIDINE (FAMPRIDINE) [Concomitant]

REACTIONS (3)
  - Multiple sclerosis relapse [None]
  - Insomnia [None]
  - Drug ineffective [None]
